FAERS Safety Report 10068270 (Version 1)
Quarter: 2014Q2

REPORT INFORMATION
  Report Type: Spontaneous
  Country: US (occurrence: US)
  Receive Date: 20140409
  Receipt Date: 20140409
  Transmission Date: 20141212
  Serious: No
  Sender: FDA-Public Use
  Company Number: US-PFIZER INC-2014096994

PATIENT
  Age: 50 Year
  Sex: Female
  Weight: 91 kg

DRUGS (1)
  1. PROTONIX [Suspect]
     Indication: GASTROOESOPHAGEAL REFLUX DISEASE
     Dosage: 40 MG, 1X/DAY
     Route: 048

REACTIONS (4)
  - Pharyngitis streptococcal [Recovered/Resolved]
  - Lacrimation increased [Unknown]
  - Hypersensitivity [Unknown]
  - Sinus disorder [Unknown]
